FAERS Safety Report 10343263 (Version 2)
Quarter: 2014Q3

REPORT INFORMATION
  Report Type: Spontaneous
  Country: US (occurrence: None)
  Receive Date: 20140723
  Receipt Date: 20140731
  Transmission Date: 20150326
  Serious: Yes (Hospitalization)
  Sender: FDA-Public Use
  Company Number: 2014-US-008931

PATIENT
  Age: 32 Year
  Sex: Female
  Weight: 106.6 kg

DRUGS (1)
  1. FAZACLO [Suspect]
     Active Substance: CLOZAPINE
     Indication: PARANOIA
     Route: 048
     Dates: start: 20070523

REACTIONS (8)
  - Paranoia [None]
  - Drug ineffective [None]
  - Dysgeusia [None]
  - Malaise [None]
  - Cough [None]
  - Retching [None]
  - Vomiting [None]
  - Product taste abnormal [None]

NARRATIVE: CASE EVENT DATE: 20140723
